FAERS Safety Report 13467314 (Version 2)
Quarter: 2017Q3

REPORT INFORMATION
  Report Type: Spontaneous
  Country: GB (occurrence: GB)
  Receive Date: 20170421
  Receipt Date: 20170802
  Transmission Date: 20171127
  Serious: Yes (Death, Hospitalization, Other)
  Sender: FDA-Public Use
  Company Number: GB-ASTELLAS-2017US015250

PATIENT
  Sex: Male

DRUGS (6)
  1. MEROPENEM. [Concomitant]
     Active Substance: MEROPENEM
     Indication: PRODUCT USED FOR UNKNOWN INDICATION
     Dosage: UNK UNK, UNKNOWN FREQ.
     Route: 065
  2. COLOMYCIN                          /00013203/ [Suspect]
     Active Substance: COLISTIN
     Indication: PATHOGEN RESISTANCE
     Dosage: UNK, UNKNOWN FREQ.
     Route: 042
  3. GANCICLOVIR. [Suspect]
     Active Substance: GANCICLOVIR
     Indication: PRODUCT USED FOR UNKNOWN INDICATION
     Dosage: UNK UNK, UNKNOWN FREQ.
     Route: 065
  4. CEFTAZIDIME PENTAHYDRATE [Concomitant]
     Active Substance: CEFTAZIDIME
     Indication: PRODUCT USED FOR UNKNOWN INDICATION
     Dosage: UNK UNK, UNKNOWN FREQ.
     Route: 065
  5. AMBISOME [Suspect]
     Active Substance: AMPHOTERICIN B
     Indication: PRODUCT USED FOR UNKNOWN INDICATION
     Dosage: 1 MG, ONCE
     Route: 065
  6. AMBISOME [Suspect]
     Active Substance: AMPHOTERICIN B
     Route: 065

REACTIONS (14)
  - Coma scale abnormal [Fatal]
  - Gastrointestinal disorder [Fatal]
  - Pseudomonas infection [Fatal]
  - Underdose [Fatal]
  - Corynebacterium infection [Fatal]
  - Ascites [Fatal]
  - Liver function test abnormal [Fatal]
  - Cytomegalovirus infection [Fatal]
  - White blood cell count increased [Fatal]
  - Renal transplant failure [Fatal]
  - Cerebrovascular accident [Fatal]
  - Abdominal wall cyst [Fatal]
  - Hepatic encephalopathy [Fatal]
  - Mechanical ileus [Fatal]

NARRATIVE: CASE EVENT DATE: 20170309
